FAERS Safety Report 10082896 (Version 3)
Quarter: 2014Q2

REPORT INFORMATION
  Report Type: Report from Study
  Country: DE (occurrence: DE)
  Receive Date: 20140417
  Receipt Date: 20140421
  Transmission Date: 20141212
  Serious: Yes (Hospitalization)
  Sender: FDA-Public Use
  Company Number: DE-ROCHE-1371470

PATIENT
  Age: 53 Year
  Sex: Female
  Weight: 55.3 kg

DRUGS (23)
  1. RITUXIMAB [Suspect]
     Indication: B-CELL LYMPHOMA
     Dosage: DATE OF LAST DOSE PRIOR TO SAE: 26/FEB/2014
     Route: 042
     Dates: start: 20140226
  2. RHUPH20/RITUXIMAB [Suspect]
     Indication: B-CELL LYMPHOMA
     Dosage: LAST DOSE PRIOR TO SAE: 26/MAR/2014
     Route: 058
     Dates: start: 20140326
  3. METAMIZOL [Suspect]
     Indication: PRODUCT USED FOR UNKNOWN INDICATION
     Route: 048
     Dates: start: 20140216
  4. METAMIZOL [Suspect]
     Route: 048
     Dates: start: 20140220, end: 20140220
  5. PANTOPRAZOL [Suspect]
     Indication: PRODUCT USED FOR UNKNOWN INDICATION
     Route: 048
     Dates: start: 20140216, end: 20140221
  6. PANTOPRAZOL [Suspect]
     Route: 048
     Dates: start: 20140222
  7. CHOLECALCIFEROL [Suspect]
     Indication: PRODUCT USED FOR UNKNOWN INDICATION
     Dosage: 1000 IE/ DAY
     Route: 065
  8. MIRTAZAPIN [Suspect]
     Indication: PRODUCT USED FOR UNKNOWN INDICATION
     Route: 048
     Dates: start: 20140317
  9. CITALOPRAM [Suspect]
     Indication: PRODUCT USED FOR UNKNOWN INDICATION
     Route: 048
     Dates: start: 20140325
  10. METOCLOPRAMID [Suspect]
     Indication: PRODUCT USED FOR UNKNOWN INDICATION
     Route: 048
     Dates: start: 20140221, end: 20140222
  11. METOCLOPRAMID [Suspect]
     Dosage: 1 AMPULE
     Route: 042
     Dates: start: 20140222, end: 20140222
  12. METOCLOPRAMID [Suspect]
     Route: 048
     Dates: start: 20140223, end: 20140302
  13. METOCLOPRAMID [Suspect]
     Dosage: 20 DROPES
     Route: 048
     Dates: start: 20140301
  14. DEXAMETHASON [Concomitant]
     Indication: ILEAL ULCER
     Route: 048
     Dates: start: 20140218, end: 20140221
  15. DEXAMETHASON [Concomitant]
     Indication: GASTROINTESTINAL HAEMORRHAGE
  16. LORMETAZEPAM [Concomitant]
     Indication: INSOMNIA
     Route: 048
     Dates: start: 20140219, end: 20140219
  17. LORMETAZEPAM [Concomitant]
     Route: 048
     Dates: start: 20140223, end: 20140227
  18. GRANISETRON [Concomitant]
     Indication: NAUSEA
     Route: 042
     Dates: start: 20140222, end: 20140222
  19. GRANISETRON [Concomitant]
     Route: 042
     Dates: start: 20140223, end: 20140223
  20. GRANISETRON [Concomitant]
     Dosage: 1 AMPULE
     Route: 042
     Dates: start: 20140227
  21. DIMENHYDRINAT [Concomitant]
     Indication: NAUSEA
     Dosage: 1 AMPULE
     Route: 042
     Dates: start: 20140223, end: 20140223
  22. PARACETAMOL [Concomitant]
     Route: 048
     Dates: start: 20140226
  23. ALIZAPRIDE [Concomitant]
     Indication: NAUSEA
     Route: 042
     Dates: start: 20140226

REACTIONS (3)
  - Depression [Not Recovered/Not Resolved]
  - Injection site pain [Recovered/Resolved]
  - Injection site erythema [Recovered/Resolved]
